FAERS Safety Report 5756603-5 (Version None)
Quarter: 2008Q2

REPORT INFORMATION
  Report Type: 
  Country: None (occurrence: None)
  Receive Date: 20080603
  Receipt Date: 20080528
  Transmission Date: 20081010
  Serious: Yes (Hospitalization, Other)
  Sender: FDA-Public Use
  Company Number: DE-BAYER-200819294GPV

PATIENT
  Age: 76 Year
  Sex: Female
  Weight: 79 kg

DRUGS (2)
  1. SORAFENIB [Suspect]
     Indication: MALIGNANT MELANOMA
     Route: 048
     Dates: start: 20080507, end: 20080520
  2. PEG-INTRON [Suspect]
     Indication: MALIGNANT MELANOMA
     Route: 058
     Dates: start: 20080507, end: 20080519

REACTIONS (5)
  - ASTHENIA [None]
  - FATIGUE [None]
  - LETHARGY [None]
  - MALAISE [None]
  - THROMBOCYTOPENIA [None]
